FAERS Safety Report 4704018-0 (Version None)
Quarter: 2005Q2

REPORT INFORMATION
  Report Type: 
  Country: None (occurrence: None)
  Receive Date: 20050629
  Receipt Date: 20050614
  Transmission Date: 20051028
  Serious: No
  Sender: FDA-Public Use
  Company Number: 11571

PATIENT
  Age: 33 Year
  Sex: Male

DRUGS (2)
  1. METHOTREXATE [Suspect]
     Indication: NERVOUS SYSTEM DISORDER
     Dosage: 12000 MG/M2 TOTAL;
  2. METHOTREXATE [Suspect]
     Indication: NON-HODGKIN'S LYMPHOMA
     Dosage: 12000 MG/M2 TOTAL;

REACTIONS (2)
  - ACUTE PROMYELOCYTIC LEUKAEMIA [None]
  - BONE MARROW TRANSPLANT [None]
